FAERS Safety Report 6879242-1 (Version None)
Quarter: 2010Q3

REPORT INFORMATION
  Report Type: 
  Country: None (occurrence: None)
  Receive Date: 20100728
  Receipt Date: 20100115
  Transmission Date: 20110219
  Serious: No
  Sender: FDA-Public Use
  Company Number: US-ABBOTT-10P-163-0620561-00

PATIENT
  Sex: Female
  Weight: 79.45 kg

DRUGS (19)
  1. SYNTHROID [Suspect]
     Indication: HYPOTHYROIDISM
     Dates: start: 19990101, end: 20090701
  2. SYNTHROID [Suspect]
     Dates: start: 20090701
  3. SYNTHROID [Suspect]
     Dosage: ALTERNATES BETWEEN 75 AND 100 MCG
  4. ZYRTEC [Concomitant]
     Indication: HYPERSENSITIVITY
  5. VALTREX [Concomitant]
     Indication: TRIGEMINAL NEURALGIA
  6. DITROPAN [Concomitant]
     Indication: INCONTINENCE
  7. BENICAR [Concomitant]
     Indication: HYPERTENSION
  8. TEKTURNA [Concomitant]
     Indication: HYPERTENSION
  9. PAXIL [Concomitant]
     Indication: DEPRESSION
  10. NEXIUM [Concomitant]
     Indication: HIATUS HERNIA
  11. ESTRACE [Concomitant]
     Indication: HORMONE REPLACEMENT THERAPY
  12. LIPITOR [Concomitant]
     Indication: BLOOD CHOLESTEROL INCREASED
  13. ASMANEX TWISTHALER [Concomitant]
     Indication: ASTHMA
  14. XOPENEX [Concomitant]
     Indication: ASTHMA
  15. GLUCOSAMINE [Concomitant]
     Indication: PRODUCT USED FOR UNKNOWN INDICATION
  16. CALCIUM [Concomitant]
     Indication: PRODUCT USED FOR UNKNOWN INDICATION
  17. VITAMIN B [Concomitant]
     Indication: PRODUCT USED FOR UNKNOWN INDICATION
  18. ASCORBIC ACID [Concomitant]
     Indication: PRODUCT USED FOR UNKNOWN INDICATION
  19. XOPENEX NEBULIZER [Concomitant]
     Indication: PRODUCT USED FOR UNKNOWN INDICATION

REACTIONS (3)
  - FATIGUE [None]
  - HAIR TEXTURE ABNORMAL [None]
  - INSOMNIA [None]
